FAERS Safety Report 19459513 (Version 2)
Quarter: 2021Q2

REPORT INFORMATION
  Report Type: Report from Study
  Country: TW (occurrence: TW)
  Receive Date: 20210624
  Receipt Date: 20210628
  Transmission Date: 20210717
  Serious: Yes (Hospitalization, Disabling, Other)
  Sender: FDA-Public Use
  Company Number: TW-ROCHE-2814397

PATIENT
  Age: 40 Year
  Sex: Female
  Weight: 57 kg

DRUGS (17)
  1. INSULIN DEGLUDEC [Concomitant]
     Active Substance: INSULIN DEGLUDEC
     Indication: DIABETES MELLITUS
     Dosage: 25 U
     Route: 058
  2. HYDROMORPHONE [Concomitant]
     Active Substance: HYDROMORPHONE
     Indication: BREAST INJURY
     Route: 048
     Dates: start: 20210317, end: 20210415
  3. ATEZOLIZUMAB. [Suspect]
     Active Substance: ATEZOLIZUMAB
     Indication: TRIPLE NEGATIVE BREAST CANCER
     Dosage: ON 08/APR/2021, THE PATIENT RECEIVED MOST RECENT DOSE OF STUDY DRUG PRIOR TO AE AND SAE
     Route: 042
     Dates: start: 20210408
  4. MEROPENEM TRIHYDRATE [Concomitant]
     Active Substance: MEROPENEM
     Indication: INFECTION
     Route: 042
     Dates: start: 20210421, end: 20210425
  5. INSULIN ASPART [Concomitant]
     Active Substance: INSULIN ASPART
     Indication: DIABETES MELLITUS
     Dosage: 5 U
     Route: 058
  6. PLAQUENIL [Concomitant]
     Active Substance: HYDROXYCHLOROQUINE SULFATE
     Indication: MUSCULOSKELETAL STIFFNESS
  7. METHYLPREDNISOLONE SODIUM SUCCINATE. [Concomitant]
     Active Substance: METHYLPREDNISOLONE SODIUM SUCCINATE
     Indication: MENINGITIS
     Route: 042
     Dates: start: 20210423
  8. TIRAGOLUMAB. [Suspect]
     Active Substance: TIRAGOLUMAB
     Indication: TRIPLE NEGATIVE BREAST CANCER
     Dosage: MOST RECENT DOSE OF STUDY DRUG PRIOR TO AE AND SAE: 08/APR/2021. ?DOSE LAST STUDY DRUG ADMIN PRIOR A
     Route: 042
     Dates: start: 20210408
  9. ALOXI [Concomitant]
     Active Substance: PALONOSETRON HYDROCHLORIDE
     Indication: PROPHYLAXIS
     Route: 042
     Dates: start: 20210408, end: 20210408
  10. DEXTROSE. [Concomitant]
     Active Substance: DEXTROSE
     Route: 042
     Dates: start: 20210420, end: 20210423
  11. DIPHENHYDRAMINE HCL [Concomitant]
     Active Substance: DIPHENHYDRAMINE HYDROCHLORIDE
     Indication: PROPHYLAXIS
     Route: 042
     Dates: start: 20210408, end: 20210408
  12. TRANEXAMIC ACID. [Concomitant]
     Active Substance: TRANEXAMIC ACID
     Indication: BREAST INJURY
     Route: 061
     Dates: start: 20210408, end: 20210422
  13. PLAQUENIL [Concomitant]
     Active Substance: HYDROXYCHLOROQUINE SULFATE
     Indication: PERIPHERAL SWELLING
     Route: 048
     Dates: start: 20210303
  14. DOXYCYCLINE HCL [Concomitant]
     Active Substance: DOXYCYCLINE HYDROCHLORIDE
     Indication: INFECTION
     Route: 048
     Dates: start: 20210422
  15. NAB?PACLITAXEL [Suspect]
     Active Substance: PACLITAXEL
     Indication: TRIPLE NEGATIVE BREAST CANCER
     Dosage: ON 08/APR/2021, THE PATIENT RECEIVED MOST RECENT DOSE OF STUDY DRUG 159 MG PRIOR TO SAE.
     Route: 042
     Dates: start: 20210408
  16. ALPRAZOLAM. [Concomitant]
     Active Substance: ALPRAZOLAM
     Indication: INSOMNIA
     Dosage: 800 ML
     Route: 048
     Dates: start: 20210420, end: 20210423
  17. PAINKYL [Concomitant]
     Indication: BREAST INJURY
     Route: 061
     Dates: start: 20210317, end: 20210331

REACTIONS (2)
  - Immune-mediated encephalitis [Not Recovered/Not Resolved]
  - Pyrexia [Recovered/Resolved]

NARRATIVE: CASE EVENT DATE: 20210414
